FAERS Safety Report 6213466-1 (Version None)
Quarter: 2009Q2

REPORT INFORMATION
  Report Type: 
  Country: None (occurrence: None)
  Receive Date: 20090603
  Receipt Date: 20090522
  Transmission Date: 20091009
  Serious: Yes (Disabling, Other)
  Sender: FDA-Public Use
  Company Number: JP-PFIZER INC-2009171612

PATIENT
  Age: 62 Year

DRUGS (5)
  1. SUNITINIB MALATE [Suspect]
     Indication: RENAL CELL CARCINOMA
     Dosage: 37.5 MG, 1X/DAY
     Route: 048
     Dates: start: 20080925
  2. BLOPRESS [Concomitant]
     Dosage: UNK
     Route: 048
  3. TAKEPRON [Concomitant]
     Route: 048
     Dates: end: 20081204
  4. BASEN [Concomitant]
     Dosage: UNK
     Route: 048
  5. NOVOLIN R [Concomitant]
     Route: 058

REACTIONS (4)
  - HYPERTENSION [None]
  - HYPOTHYROIDISM [None]
  - NO THERAPEUTIC RESPONSE [None]
  - SKIN REACTION [None]
